FAERS Safety Report 22004251 (Version 1)
Quarter: 2023Q1

REPORT INFORMATION
  Report Type: Spontaneous
  Country: US (occurrence: US)
  Receive Date: 20230217
  Receipt Date: 20230217
  Transmission Date: 20230418
  Serious: No
  Sender: FDA-Public Use
  Company Number: US-BRISTOL-MYERS SQUIBB COMPANY-2023-022240

PATIENT
  Sex: Male
  Weight: 90.26 kg

DRUGS (1)
  1. INREBIC [Suspect]
     Active Substance: FEDRATINIB HYDROCHLORIDE
     Indication: Myelofibrosis
     Dosage: ONCE DAILY
     Route: 048
     Dates: start: 20230214

REACTIONS (2)
  - Abdominal discomfort [Recovering/Resolving]
  - Nausea [Unknown]
